FAERS Safety Report 17616797 (Version 1)
Quarter: 2020Q2

REPORT INFORMATION
  Report Type: Spontaneous
  Country: US (occurrence: US)
  Receive Date: 20200402
  Receipt Date: 20200402
  Transmission Date: 20200713
  Serious: No
  Sender: FDA-Public Use
  Company Number: None

PATIENT
  Age: 21 Year
  Sex: Female
  Weight: 56.7 kg

DRUGS (3)
  1. BENADRYL [Concomitant]
     Active Substance: DIPHENHYDRAMINE HYDROCHLORIDE
  2. KYLEENA [Suspect]
     Active Substance: LEVONORGESTREL
  3. IBUPROFEN. [Concomitant]
     Active Substance: IBUPROFEN

REACTIONS (4)
  - Anxiety [None]
  - Device dislocation [None]
  - Vulvovaginal mycotic infection [None]
  - Bartholin^s cyst [None]

NARRATIVE: CASE EVENT DATE: 20200205
